FAERS Safety Report 6800916-2 (Version None)
Quarter: 2010Q2

REPORT INFORMATION
  Report Type: 
  Country: None (occurrence: None)
  Receive Date: 20100629
  Receipt Date: 20100615
  Transmission Date: 20101027
  Serious: Yes (Other)
  Sender: FDA-Public Use
  Company Number: PHHY2010FR40107

PATIENT
  Age: 75 Year
  Sex: Female

DRUGS (1)
  1. RASILEZ [Suspect]
     Dosage: 150 MG, FOR 14 DAYS.

REACTIONS (3)
  - ERYTHEMA [None]
  - FACE OEDEMA [None]
  - PRURITUS [None]
